FAERS Safety Report 4654728-9 (Version None)
Quarter: 2005Q2

REPORT INFORMATION
  Report Type: 
  Country: None (occurrence: None)
  Receive Date: 20050505
  Receipt Date: 20050505
  Transmission Date: 20051028
  Serious: Yes (Other)
  Sender: FDA-Public Use
  Company Number: None

PATIENT
  Sex: Female
  Weight: 45.3597 kg

DRUGS (2)
  1. FENTANYL     100 MCG/HOUR PATCH  GENERIC [Suspect]
     Indication: BACK PAIN
     Dosage: 1   EVERY 72 HOURS   TRANSDERMA
     Route: 062
     Dates: start: 20050401, end: 20050430
  2. FENTANYL   75 MCG/HOUR PATCH   GENERIC [Suspect]
     Indication: BACK PAIN
     Dosage: 1    EVERY 72 HOUR    TRANSDERMA
     Route: 062
     Dates: start: 20050401, end: 20050430

REACTIONS (2)
  - DRUG EFFECT DECREASED [None]
  - THERAPEUTIC RESPONSE UNEXPECTED WITH DRUG SUBSTITUTION [None]
